FAERS Safety Report 4705692-5 (Version None)
Quarter: 2005Q2

REPORT INFORMATION
  Report Type: 
  Country: None (occurrence: None)
  Receive Date: 20050629
  Receipt Date: 20050623
  Transmission Date: 20051028
  Serious: Yes (Life-Threatening, Hospitalization)
  Sender: FDA-Public Use
  Company Number: 050624-0000666

PATIENT
  Age: 35 Year
  Sex: Female

DRUGS (5)
  1. TRANXENE [Suspect]
     Indication: SUICIDE ATTEMPT
     Dosage: 650 MG; 1X
     Dates: start: 20050519, end: 20050519
  2. DEPAKOTE [Suspect]
     Indication: SUICIDE ATTEMPT
     Dosage: 5000 MG; 1X; PO
     Route: 048
     Dates: start: 20050519, end: 20050519
  3. MEPRONIZINE (MEPROBAMATE/ACEPROMETAZINE) [Suspect]
     Indication: SUICIDE ATTEMPT
     Dosage: 4100 MG; 1X; PO
     Route: 048
     Dates: start: 20050519, end: 20050519
  4. HEPARIN-FRACTION SODIUM SALT [Suspect]
     Indication: SUICIDE ATTEMPT
     Dosage: 54000 IU; 1X; SC
     Route: 058
     Dates: start: 20050417, end: 20050519
  5. HEPARIN-FRACTION SODIUM SALT [Suspect]
     Indication: THROMBOSIS PROPHYLAXIS
     Dosage: 54000 IU; 1X; SC
     Route: 058
     Dates: start: 20050417, end: 20050519

REACTIONS (5)
  - ACTIVATED PARTIAL THROMBOPLASTIN TIME PROLONGED [None]
  - COAGULOPATHY [None]
  - MENISCUS OPERATION [None]
  - MULTIPLE DRUG OVERDOSE [None]
  - SUICIDE ATTEMPT [None]
